FAERS Safety Report 18196700 (Version 2)
Quarter: 2020Q4

REPORT INFORMATION
  Report Type: Report from Study
  Country: US (occurrence: US)
  Receive Date: 20200826
  Receipt Date: 20201009
  Transmission Date: 20210113
  Serious: Yes (Other)
  Sender: FDA-Public Use
  Company Number: US-BIOGEN-2020BI00866965

PATIENT
  Age: 65 Year
  Sex: Female

DRUGS (4)
  1. TYSABRI [Suspect]
     Active Substance: NATALIZUMAB
     Indication: MULTIPLE SCLEROSIS
     Dosage: INFUSED OVER ONE HOUR
     Route: 042
     Dates: start: 20070404
  2. ACETAZOLAMIDE. [Suspect]
     Active Substance: ACETAZOLAMIDE
     Indication: GLAUCOMA
     Route: 065
  3. VALTREX [Suspect]
     Active Substance: VALACYCLOVIR HYDROCHLORIDE
     Route: 065
  4. VALTREX [Suspect]
     Active Substance: VALACYCLOVIR HYDROCHLORIDE
     Indication: OPHTHALMIC HERPES ZOSTER
     Route: 065

REACTIONS (15)
  - Iritis [Not Recovered/Not Resolved]
  - Uveitis [Not Recovered/Not Resolved]
  - Sweat gland tumour [Unknown]
  - Dyspnoea [Unknown]
  - Papilloma [Unknown]
  - Scleritis [Unknown]
  - Conjunctival haemorrhage [Unknown]
  - Conjunctival granuloma [Unknown]
  - Herpes virus infection [Unknown]
  - Ophthalmic herpes zoster [Not Recovered/Not Resolved]
  - Basal cell carcinoma [Unknown]
  - Glaucoma [Not Recovered/Not Resolved]
  - Hordeolum [Unknown]
  - Pinguecula [Unknown]
  - Chalazion [Unknown]

NARRATIVE: CASE EVENT DATE: 2018
